FAERS Safety Report 16686445 (Version 1)
Quarter: 2019Q3

REPORT INFORMATION
  Report Type: Spontaneous
  Country: JP (occurrence: JP)
  Receive Date: 20190809
  Receipt Date: 20190809
  Transmission Date: 20191004
  Serious: Yes (Life-Threatening, Hospitalization, Other)
  Sender: FDA-Public Use
  Company Number: JP-ROCHE-2371412

PATIENT
  Age: 66 Year
  Sex: Female

DRUGS (1)
  1. ACTEMRA [Suspect]
     Active Substance: TOCILIZUMAB
     Indication: RHEUMATOID ARTHRITIS
     Route: 041
     Dates: start: 2018, end: 201901

REACTIONS (9)
  - Cerebral artery embolism [Not Recovered/Not Resolved]
  - Endocarditis [Unknown]
  - Localised infection [Unknown]
  - Aphasia [Unknown]
  - Hemiplegia [Unknown]
  - Pneumonia [Unknown]
  - Diarrhoea [Unknown]
  - Urinary tract infection [Unknown]
  - Muscle abscess [Unknown]

NARRATIVE: CASE EVENT DATE: 201902
